FAERS Safety Report 4782428-3 (Version None)
Quarter: 2005Q3

REPORT INFORMATION
  Report Type: 
  Country: None (occurrence: None)
  Receive Date: 20050929
  Receipt Date: 20041007
  Transmission Date: 20060218
  Serious: No
  Sender: FDA-Public Use
  Company Number: 386118

PATIENT
  Age: 69 Year
  Sex: Male

DRUGS (7)
  1. COREG [Suspect]
     Dosage: 50MG TWICE PER DAY
     Route: 048
  2. LOPRESSOR [Concomitant]
  3. ASPIRIN [Concomitant]
  4. DEMADEX [Concomitant]
  5. FLOMAX [Concomitant]
  6. CARDIZEM [Concomitant]
  7. TORSEMIDE [Concomitant]

REACTIONS (6)
  - ABDOMINAL PAIN UPPER [None]
  - FLUID RETENTION [None]
  - HEART RATE INCREASED [None]
  - LABILE BLOOD PRESSURE [None]
  - RASH GENERALISED [None]
  - STOMACH DISCOMFORT [None]
